FAERS Safety Report 4435418-4 (Version None)
Quarter: 2004Q3

REPORT INFORMATION
  Report Type: 
  Country: None (occurrence: None)
  Receive Date: 20040826
  Receipt Date: 20040817
  Transmission Date: 20050211
  Serious: Yes (Death)
  Sender: FDA-Public Use
  Company Number: 2004229033SI

PATIENT
  Age: 69 Year
  Sex: Female

DRUGS (2)
  1. HEPARIN SODIUM [Suspect]
     Indication: THROMBOSIS
     Dosage: IV
     Route: 042
  2. AMOXICILLIN [Concomitant]

REACTIONS (13)
  - BLOOD PRESSURE DECREASED [None]
  - BUNDLE BRANCH BLOCK RIGHT [None]
  - CEREBRAL HAEMORRHAGE [None]
  - DILATATION VENTRICULAR [None]
  - DRUG INEFFECTIVE [None]
  - ELECTROCARDIOGRAM T WAVE INVERSION [None]
  - HEPATOMEGALY [None]
  - HYPERTENSION [None]
  - HYPOKINESIA [None]
  - INTRACARDIAC THROMBUS [None]
  - JUGULAR VEIN DISTENSION [None]
  - NAUSEA [None]
  - SINUS TACHYCARDIA [None]
